FAERS Safety Report 20220287 (Version 1)
Quarter: 2021Q4

REPORT INFORMATION
  Report Type: Other
  Country: PL (occurrence: PL)
  Receive Date: 20211223
  Receipt Date: 20211223
  Transmission Date: 20220303
  Serious: Yes (Hospitalization, Other)
  Sender: FDA-Public Use
  Company Number: None

PATIENT
  Age: 83 Year
  Sex: Female
  Weight: 91 kg

DRUGS (27)
  1. ALLOPURINOL [Interacting]
     Active Substance: ALLOPURINOL
     Indication: Product used for unknown indication
     Dosage: 100 MG, PER DAY, IN THE EVENING
     Route: 065
  2. ZOLPIDEM [Interacting]
     Active Substance: ZOLPIDEM TARTRATE
     Indication: Product used for unknown indication
     Dosage: 10 MG, PER DAY
     Route: 065
  3. GLICLAZIDE [Interacting]
     Active Substance: GLICLAZIDE
     Indication: Product used for unknown indication
     Dosage: 180 MILLIGRAM PER DAY, 60 MG, 3X PER DAY
     Route: 065
  4. METFORMIN [Interacting]
     Active Substance: METFORMIN HYDROCHLORIDE
     Indication: Product used for unknown indication
     Dosage: UNK
     Route: 065
  5. CITALOPRAM [Interacting]
     Active Substance: CITALOPRAM HYDROBROMIDE
     Indication: Product used for unknown indication
     Dosage: 40 MILLIGRAM PER DAY, IN THE MORNING
     Route: 065
  6. POTASSIUM CHLORIDE [Interacting]
     Active Substance: POTASSIUM CHLORIDE
     Indication: Product used for unknown indication
     Dosage: 391 MG, EVERY OTHER DAY
     Route: 065
  7. ALBUTEROL [Interacting]
     Active Substance: ALBUTEROL
     Indication: Product used for unknown indication
     Dosage: 100 MICROGRAM, AS NEEDED
     Route: 065
  8. HYDROCHLOROTHIAZIDE [Interacting]
     Active Substance: HYDROCHLOROTHIAZIDE
     Indication: Product used for unknown indication
     Dosage: 25 MG, PER DAY, IN THE MORNING
     Route: 065
  9. OMEPRAZOLE [Interacting]
     Active Substance: OMEPRAZOLE
     Indication: Product used for unknown indication
     Dosage: 40 MILLIGRAM PER DAY, 20 MG, 2X PER DAY
     Route: 065
  10. METOPROLOL [Interacting]
     Active Substance: METOPROLOL
     Indication: Product used for unknown indication
     Dosage: 100 MILLIGRAM PER DAY, 50 MG, 2X PER DAY
     Route: 065
  11. SPIRONOLACTONE [Interacting]
     Active Substance: SPIRONOLACTONE
     Indication: Product used for unknown indication
     Dosage: 100 MILLIGRAM PER DAY
     Route: 065
  12. DEXTROSE\NIKETHAMIDE [Interacting]
     Active Substance: DEXTROSE\NIKETHAMIDE
     Indication: Product used for unknown indication
     Dosage: 1.5 MG/125 MG, AS NEEDED
     Route: 065
  13. ALPRAZOLAM [Interacting]
     Active Substance: ALPRAZOLAM
     Indication: Product used for unknown indication
     Dosage: 1 MILLIGRAM PER DAY, 0.5 MG, 2X PER DAY
     Route: 065
  14. FUROSEMIDE [Interacting]
     Active Substance: FUROSEMIDE
     Indication: Product used for unknown indication
     Dosage: 120 MG, EVERY OTHER DAY
     Route: 065
  15. TRAMADOL HYDROCHLORIDE [Interacting]
     Active Substance: TRAMADOL HYDROCHLORIDE
     Indication: Product used for unknown indication
     Dosage: 100 MG, AS NEEDED
     Route: 065
  16. TRAMADOL HYDROCHLORIDE [Interacting]
     Active Substance: TRAMADOL HYDROCHLORIDE
     Dosage: UNK, DOSE REDUCED
     Route: 065
  17. ACETAMINOPHEN [Interacting]
     Active Substance: ACETAMINOPHEN
     Indication: Product used for unknown indication
     Dosage: 500 MG PER DAY, IN THE EVENING
     Route: 065
  18. ACETAMINOPHEN [Interacting]
     Active Substance: ACETAMINOPHEN
     Dosage: UNK, DOSE REDUCED
     Route: 065
  19. HYDROXYZINE [Interacting]
     Active Substance: HYDROXYZINE HYDROCHLORIDE
     Indication: Product used for unknown indication
     Dosage: 50 MILLIGRAM PER DAY, 25 MG, 2X PER DAY
     Route: 065
  20. ATORVASTATIN [Interacting]
     Active Substance: ATORVASTATIN
     Indication: Product used for unknown indication
     Dosage: 20 MG, PER DAY, IN THE EVENING
     Route: 065
  21. ISOSORBIDE MONONITRATE [Interacting]
     Active Substance: ISOSORBIDE MONONITRATE
     Indication: Product used for unknown indication
     Dosage: 50 MG, PER DAY
     Route: 065
  22. METOCLOPRAMIDE [Interacting]
     Active Substance: METOCLOPRAMIDE
     Indication: Constipation
     Dosage: 10 MG, AS NEEDED
     Route: 065
  23. TORSEMIDE [Suspect]
     Active Substance: TORSEMIDE
     Indication: Product used for unknown indication
     Dosage: UNK
     Route: 065
  24. BETAHISTINE [Interacting]
     Active Substance: BETAHISTINE
     Indication: Product used for unknown indication
     Dosage: 24 MG PER DAY (1X PER DAY)
     Route: 065
  25. LEVOTHYROXINE [Interacting]
     Active Substance: LEVOTHYROXINE
     Indication: Product used for unknown indication
     Dosage: 100 MICROGRAM PER DAY, IN THE MORNING
     Route: 065
  26. DABIGATRAN [Interacting]
     Active Substance: DABIGATRAN
     Indication: Product used for unknown indication
     Dosage: 220 MILLIGRAM PER DAY, (110 MG, 2X PER DAY)
     Route: 065
  27. RAMIPRIL [Interacting]
     Active Substance: RAMIPRIL
     Indication: Product used for unknown indication
     Dosage: 5 MG, PER DAY, IN THE MORNING
     Route: 065

REACTIONS (25)
  - Parkinsonism [Unknown]
  - Hypotension [Unknown]
  - Blood creatine increased [Unknown]
  - Multiple drug therapy [Unknown]
  - Osteoporosis [Unknown]
  - Drug dependence [Unknown]
  - Hypoglycaemia [Unknown]
  - Drug interaction [Unknown]
  - Product administration error [Unknown]
  - Insomnia [Unknown]
  - Syncope [Unknown]
  - Blood cholesterol decreased [Unknown]
  - Blood potassium increased [Unknown]
  - Fall [Unknown]
  - Urinary retention [Unknown]
  - Hyponatraemia [Unknown]
  - Blood urea increased [Unknown]
  - Dementia [Unknown]
  - Melaena [Unknown]
  - Abdominal pain upper [Unknown]
  - Depression [Unknown]
  - Constipation [Unknown]
  - Pruritus [Unknown]
  - Arthralgia [Unknown]
  - Nausea [Unknown]
